FAERS Safety Report 14727402 (Version 2)
Quarter: 2018Q3

REPORT INFORMATION
  Report Type: Report from Study
  Country: GR (occurrence: GR)
  Receive Date: 20180406
  Receipt Date: 20180927
  Transmission Date: 20181010
  Serious: Yes (Hospitalization, Other)
  Sender: FDA-Public Use
  Company Number: GR-JNJFOC-20171135713

PATIENT
  Age: 71 Year
  Sex: Male
  Weight: 104 kg

DRUGS (31)
  1. DECADRON [Suspect]
     Active Substance: DEXAMETHASONE
     Indication: PLASMA CELL MYELOMA
     Dosage: DAY 1 AND 2 AFTER EACH BORTEZOMIB ADMINISTRATION
     Route: 042
     Dates: start: 20171220, end: 20180118
  2. TROFOCARD [Concomitant]
     Route: 065
     Dates: start: 2017
  3. SOLURIC [Concomitant]
     Active Substance: ALLOPURINOL
     Route: 065
     Dates: start: 2015
  4. NEUROBION [Concomitant]
     Active Substance: CYANOCOBALAMIN\PYRIDOXINE\THIAMINE
     Route: 048
     Dates: start: 20171220
  5. DIANICOTYL [Concomitant]
     Route: 048
     Dates: start: 20170430
  6. THYROHORMONE [Concomitant]
     Active Substance: LEVOTHYROXINE SODIUM
     Route: 048
     Dates: start: 1999
  7. OMEPRAZOLE. [Concomitant]
     Active Substance: OMEPRAZOLE
     Route: 042
     Dates: start: 20180117
  8. DECADRON [Suspect]
     Active Substance: DEXAMETHASONE
     Indication: PLASMA CELL MYELOMA
     Dosage: DAY 1 AND 2 AFTER EACH BORTEZOMIB ADMINISTRATION
     Route: 048
     Dates: start: 20171220, end: 20180118
  9. CYTOXAN [Suspect]
     Active Substance: CYCLOPHOSPHAMIDE
     Indication: PLASMA CELL MYELOMA
     Route: 042
     Dates: start: 20170421
  10. ZOMETA [Concomitant]
     Active Substance: ZOLEDRONIC ACID
     Route: 065
     Dates: start: 20180110
  11. METHYLPREDNISOLONE. [Concomitant]
     Active Substance: METHYLPREDNISOLONE
     Route: 065
     Dates: start: 20171220
  12. DARZALEX [Suspect]
     Active Substance: DARATUMUMAB
     Indication: PLASMA CELL MYELOMA
     Route: 042
     Dates: start: 20180226
  13. SINGULAIR [Concomitant]
     Active Substance: MONTELUKAST SODIUM
     Route: 048
     Dates: start: 20170110
  14. KYPROLIS [Suspect]
     Active Substance: CARFILZOMIB
     Indication: PLASMA CELL MYELOMA
     Route: 042
     Dates: start: 20171220, end: 20180118
  15. CLOVELEN [Concomitant]
     Active Substance: CLOPIDOGREL BISULFATE
     Route: 065
     Dates: start: 2007
  16. VALTREX [Concomitant]
     Active Substance: VALACYCLOVIR HYDROCHLORIDE
     Route: 048
     Dates: start: 20170515
  17. JANUMET [Concomitant]
     Active Substance: METFORMIN HYDROCHLORIDE\SITAGLIPTIN PHOSPHATE
     Route: 048
     Dates: start: 2007
  18. VELCADE [Suspect]
     Active Substance: BORTEZOMIB
     Indication: PLASMA CELL MYELOMA
     Dosage: ON DAYS 1, 4, 8, 11 AND 1 WEEKS OFF EVERY 21 DAYS
     Route: 058
     Dates: start: 20170421
  19. DARZALEX [Suspect]
     Active Substance: DARATUMUMAB
     Indication: PLASMA CELL MYELOMA
     Route: 042
     Dates: start: 20171220, end: 20180117
  20. IMDUR [Concomitant]
     Active Substance: ISOSORBIDE MONONITRATE
     Route: 048
     Dates: start: 20180106
  21. NOZAC [Concomitant]
     Route: 048
     Dates: start: 2007
  22. FENISTIL [Concomitant]
     Active Substance: DIMETHINDENE
     Route: 042
     Dates: start: 20171220
  23. DECADRON [Suspect]
     Active Substance: DEXAMETHASONE
     Indication: PLASMA CELL MYELOMA
     Dosage: DAY 1 AND 2 AFTER EACH BORTEZOMIB ADMINISTRATION
     Route: 048
     Dates: start: 20170421, end: 20170928
  24. PARACETAMOL [Concomitant]
     Active Substance: ACETAMINOPHEN
     Route: 042
     Dates: start: 20171220
  25. LOSEC [Concomitant]
     Active Substance: OMEPRAZOLE
     Route: 048
     Dates: start: 20170430
  26. MANYPER [Concomitant]
     Route: 048
     Dates: start: 20180106
  27. ZYLAPOUR [Concomitant]
     Route: 048
     Dates: start: 20171220
  28. ZIPION [Concomitant]
     Route: 048
     Dates: start: 2007
  29. APROVEL [Concomitant]
     Active Substance: IRBESARTAN
     Route: 048
     Dates: start: 2007
  30. SOLOSA [Concomitant]
     Active Substance: GLIMEPIRIDE
     Route: 048
     Dates: start: 2007
  31. ZOFRAN [Concomitant]
     Active Substance: ONDANSETRON HYDROCHLORIDE
     Route: 042
     Dates: start: 20171227

REACTIONS (2)
  - Pain in extremity [Recovered/Resolved]
  - Interstitial lung disease [Recovered/Resolved]

NARRATIVE: CASE EVENT DATE: 20170925
